FAERS Safety Report 9263055 (Version 1)
Quarter: 2013Q2

REPORT INFORMATION
  Report Type: Spontaneous
  Country: DK (occurrence: None)
  Receive Date: 20130425
  Receipt Date: 20130425
  Transmission Date: 20140414
  Serious: Yes (Hospitalization, Other)
  Sender: FDA-Public Use
  Company Number: DK-DEXPHARM-20130160

PATIENT
  Age: 38 Year
  Sex: Male

DRUGS (2)
  1. CHLORHEXIDINE GLUCONATE [Suspect]
     Indication: LEUKOPLAKIA
  2. ACETYLSALICYLIC ACID [Suspect]

REACTIONS (4)
  - Tongue discolouration [None]
  - Drug ineffective [None]
  - Overdose [None]
  - Stomatitis [None]
